FAERS Safety Report 4794351-9 (Version None)
Quarter: 2005Q4

REPORT INFORMATION
  Report Type: 
  Country: None (occurrence: None)
  Receive Date: 20051007
  Receipt Date: 20051007
  Transmission Date: 20060501
  Serious: Yes (Death)
  Sender: FDA-Public Use
  Company Number: None

PATIENT
  Age: 70 Year
  Sex: Male

DRUGS (4)
  1. ASPIRIN [Suspect]
     Indication: ARTERIOSCLEROSIS
     Dosage: [YEARS]
  2. NEXIUM [Concomitant]
  3. FOSAMAX [Concomitant]
  4. CALCIUM GLUCONATE [Concomitant]

REACTIONS (1)
  - HAEMORRHAGE INTRACRANIAL [None]
